FAERS Safety Report 9234071 (Version 1)
Quarter: 2013Q2

REPORT INFORMATION
  Report Type: Spontaneous
  Country: DE (occurrence: DE)
  Receive Date: 20130416
  Receipt Date: 20130416
  Transmission Date: 20140414
  Serious: Yes (Death, Other)
  Sender: FDA-Public Use
  Company Number: DE-BAYER-2013-047160

PATIENT
  Sex: Female

DRUGS (1)
  1. CIPROBAY [Suspect]

REACTIONS (3)
  - Convulsion [None]
  - Rash [None]
  - Death [Fatal]
